FAERS Safety Report 8988638 (Version 2)
Quarter: 2013Q1

REPORT INFORMATION
  Report Type: Spontaneous
  Country: US (occurrence: None)
  Receive Date: 20121218
  Receipt Date: 20130205
  Transmission Date: 20140127
  Serious: Yes (Hospitalization)
  Sender: FDA-Public Use
  Company Number: 2012US-004482

PATIENT
  Age: 63 Year
  Sex: Female
  Weight: 69.5 kg

DRUGS (1)
  1. OMONTYS [Suspect]
     Indication: NEPHROGENIC ANAEMIA
     Route: 042
     Dates: start: 20121017, end: 20121117

REACTIONS (6)
  - Gastrointestinal haemorrhage [None]
  - Abdominal pain [None]
  - Campylobacter test positive [None]
  - Pleural effusion [None]
  - Haematocrit decreased [None]
  - Haemoglobin decreased [None]
